FAERS Safety Report 13737176 (Version 1)
Quarter: 2017Q3

REPORT INFORMATION
  Report Type: Spontaneous
  Country: US (occurrence: US)
  Receive Date: 20170710
  Receipt Date: 20170710
  Transmission Date: 20171127
  Serious: No
  Sender: FDA-Public Use
  Company Number: US-009507513-1706USA010210

PATIENT
  Sex: Female

DRUGS (1)
  1. NEXPLANON [Suspect]
     Active Substance: ETONOGESTREL
     Dosage: UNK

REACTIONS (5)
  - Occupational exposure to product [Unknown]
  - Accidental exposure to product [Unknown]
  - No adverse event [Unknown]
  - Exposure via skin contact [Unknown]
  - Product contamination [Unknown]
